FAERS Safety Report 5139863-3 (Version None)
Quarter: 2006Q4

REPORT INFORMATION
  Report Type: 
  Country: None (occurrence: None)
  Receive Date: 20061025
  Receipt Date: 20061025
  Transmission Date: 20070319
  Serious: Yes (Hospitalization)
  Sender: FDA-Public Use
  Company Number: None

PATIENT
  Age: 72 Year
  Sex: Male
  Weight: 93.8946 kg

DRUGS (2)
  1. CARBAMAZEPINE [Suspect]
     Dosage: 400 MG QAM, 200 MG AT NOON 400MG AT HS
     Dates: start: 20060912, end: 20060915
  2. CYCLOBENZAPRINE HCL [Suspect]
     Dosage: 10 MG PO TID
     Route: 048
     Dates: start: 20060912

REACTIONS (3)
  - FALL [None]
  - HYPOGLYCAEMIA [None]
  - MENTAL STATUS CHANGES [None]
